FAERS Safety Report 16229328 (Version 1)
Quarter: 2019Q2

REPORT INFORMATION
  Report Type: Spontaneous
  Country: US (occurrence: US)
  Receive Date: 20190423
  Receipt Date: 20190423
  Transmission Date: 20190711
  Serious: Yes (Other)
  Sender: FDA-Public Use
  Company Number: US-009507513-1904USA008946

PATIENT
  Sex: Female

DRUGS (1)
  1. ZETIA [Suspect]
     Active Substance: EZETIMIBE

REACTIONS (3)
  - Thyroid cancer [Unknown]
  - Back disorder [Unknown]
  - Muscle disorder [Unknown]
